FAERS Safety Report 5805209-8 (Version None)
Quarter: 2008Q3

REPORT INFORMATION
  Report Type: 
  Country: None (occurrence: None)
  Receive Date: 20080707
  Receipt Date: 20080514
  Transmission Date: 20090109
  Serious: Yes (Other)
  Sender: FDA-Public Use
  Company Number: ADE# 08-068

PATIENT
  Age: 44 Year
  Sex: Male
  Weight: 95.2554 kg

DRUGS (1)
  1. PHENYTOIN SODIUM [Suspect]
     Indication: EPILEPSY
     Dosage: 3 CAPS. AM+PM
     Dates: start: 20080414, end: 20080508

REACTIONS (13)
  - CONFUSIONAL STATE [None]
  - CORRECTIVE LENS USER [None]
  - DIZZINESS [None]
  - DYSARTHRIA [None]
  - EYE ROLLING [None]
  - HEADACHE [None]
  - HYPERTENSION [None]
  - HYPOAESTHESIA [None]
  - IMPAIRED WORK ABILITY [None]
  - LETHARGY [None]
  - PARAESTHESIA [None]
  - PHARMACEUTICAL PRODUCT COMPLAINT [None]
  - VISION BLURRED [None]
